FAERS Safety Report 4548139-4 (Version None)
Quarter: 2004Q4

REPORT INFORMATION
  Report Type: 
  Country: None (occurrence: None)
  Receive Date: 20041220
  Receipt Date: 20041027
  Transmission Date: 20050328
  Serious: Yes (Other)
  Sender: FDA-Public Use
  Company Number: 2004086546

PATIENT
  Age: 63 Year
  Sex: Female
  Weight: 130 kg

DRUGS (18)
  1. VFEND [Suspect]
     Indication: ASPERGILLOSIS
     Dosage: 400 MG (200 MG, 2 IN 1 D), ORAL
     Route: 048
     Dates: start: 20040512
  2. CASPOFUNGIN (CASPOFUNGIN) [Suspect]
     Indication: ILL-DEFINED DISORDER
     Dosage: 100 MG (50 MG, 2 IN 1D), INTRAVENOUS
     Route: 042
     Dates: start: 20040101, end: 20041008
  3. CLONIDINE [Concomitant]
  4. AMLODIPINE BESYLATE [Concomitant]
  5. MINOXIDIL [Concomitant]
  6. MYCOPHENOLATE MOFETIL (MYCOPHENOLATE MOFETIL) [Concomitant]
  7. PREDNISONE [Concomitant]
  8. VALGANCICLOVIR (VALGANCICLOVIR) [Concomitant]
  9. CALCITROL (CALCIUM CARBONATE, ERGOCALCIFEROL, RETINOL) [Concomitant]
  10. PENICILLIN [Concomitant]
  11. DOCUSATE SODIUM (DOCUSATE SODIUM) [Concomitant]
  12. RANITIDINE [Concomitant]
  13. FUROSEMIDE [Concomitant]
  14. MULTIVITAMINS (ASCORBIC ACID, ERGOCALCIFEROL, FOLIC ACID, NICOTINAMIDE [Concomitant]
  15. CALCIUM CARBONATE (CALCIUM CARBONATE) [Concomitant]
  16. IRON (IRON) [Concomitant]
  17. ATENOLOL [Concomitant]
  18. LOSARTAN POTASSIUM [Concomitant]

REACTIONS (10)
  - BLINDNESS TRANSIENT [None]
  - COAGULOPATHY [None]
  - COLOUR BLINDNESS [None]
  - DRUG LEVEL BELOW THERAPEUTIC [None]
  - HYPOAESTHESIA [None]
  - NERVE INJURY [None]
  - OEDEMA PERIPHERAL [None]
  - PARAESTHESIA [None]
  - VISION BLURRED [None]
  - VISUAL BRIGHTNESS [None]
